FAERS Safety Report 7719586-4 (Version None)
Quarter: 2011Q3

REPORT INFORMATION
  Report Type: 
  Country: None (occurrence: None)
  Receive Date: 20110830
  Receipt Date: 20110825
  Transmission Date: 20111222
  Serious: Yes (Hospitalization)
  Sender: FDA-Public Use
  Company Number: RO-ABBOTT-11P-135-0849545-00

PATIENT
  Sex: Female
  Weight: 60 kg

DRUGS (3)
  1. ARAVA [Suspect]
     Indication: PSORIATIC ARTHROPATHY
     Route: 048
     Dates: start: 20100801, end: 20110701
  2. METHOTREXATE [Suspect]
     Indication: PSORIATIC ARTHROPATHY
     Dosage: 5MG DAILY, 2 CONSECUTIVE DAYS
     Route: 030
     Dates: start: 20080501, end: 20110701
  3. HUMIRA [Suspect]
     Indication: PSORIATIC ARTHROPATHY
     Route: 058
     Dates: start: 20110601, end: 20110701

REACTIONS (3)
  - LYMPH NODE TUBERCULOSIS [None]
  - OEDEMA PERIPHERAL [None]
  - DYSPHAGIA [None]
